FAERS Safety Report 13303619 (Version 3)
Quarter: 2017Q2

REPORT INFORMATION
  Report Type: Report from Study
  Country: None (occurrence: US)
  Receive Date: 20170307
  Receipt Date: 20170523
  Transmission Date: 20170830
  Serious: No
  Sender: FDA-Public Use
  Company Number: US-ABBVIE-17P-163-1894399-00

PATIENT
  Age: 24 Year
  Sex: Female
  Weight: 58.57 kg

DRUGS (1)
  1. LUPRON DEPOT [Suspect]
     Active Substance: LEUPROLIDE ACETATE
     Indication: ENDOMETRIOSIS
     Route: 030
     Dates: start: 20170306

REACTIONS (5)
  - Nausea [Unknown]
  - Vomiting [Unknown]
  - Hot flush [Not Recovered/Not Resolved]
  - Pelvic pain [Unknown]
  - Vulvovaginal pain [Unknown]

NARRATIVE: CASE EVENT DATE: 20170321
